FAERS Safety Report 9004378 (Version 1)
Quarter: 2013Q1

REPORT INFORMATION
  Report Type: Spontaneous
  Country: US (occurrence: None)
  Receive Date: 20130104
  Receipt Date: 20130104
  Transmission Date: 20140127
  Serious: Yes (Other)
  Sender: FDA-Public Use
  Company Number: None

PATIENT
  Age: 6 Year
  Sex: Female
  Weight: 22.68 kg

DRUGS (2)
  1. VALPROIC ACID [Suspect]
     Indication: CONVULSION
     Dosage: 250 MG/ 5 ML  BID  PO
     Route: 048
     Dates: start: 20121204
  2. OXCARBAZEPINE [Suspect]
     Indication: CONVULSION
     Dosage: 300MG/ 5ML  BID  PO
     Route: 048
     Dates: start: 20121204

REACTIONS (3)
  - Product substitution issue [None]
  - Drug effect decreased [None]
  - Convulsion [None]
